FAERS Safety Report 20785259 (Version 1)
Quarter: 2022Q2

REPORT INFORMATION
  Report Type: Spontaneous
  Country: US (occurrence: None)
  Receive Date: 20220504
  Receipt Date: 20220504
  Transmission Date: 20220721
  Serious: Yes (Other)
  Sender: FDA-Public Use
  Company Number: None

PATIENT
  Age: 81 Year
  Sex: Male

DRUGS (1)
  1. ENBREL [Suspect]
     Active Substance: ETANERCEPT
     Indication: Rheumatoid arthritis
     Dosage: FREQUENCY : TWICE A WEEK;?
     Route: 058
     Dates: start: 201608, end: 20220430

REACTIONS (2)
  - Treatment failure [None]
  - White blood cell count increased [None]

NARRATIVE: CASE EVENT DATE: 20220502
